FAERS Safety Report 7322816-4 (Version None)
Quarter: 2011Q1

REPORT INFORMATION
  Report Type: 
  Country: None (occurrence: None)
  Receive Date: 20110209
  Receipt Date: 20110202
  Transmission Date: 20110831
  Serious: Yes (Disabling)
  Sender: FDA-Public Use
  Company Number: AEPRT201100022

PATIENT
  Age: 82 Year
  Sex: Male
  Weight: 75 kg

DRUGS (4)
  1. METFORMIN [Concomitant]
  2. GAMUNEX [Suspect]
     Indication: POLYNEUROPATHY
     Dosage: 30 GM; QM; IV
     Route: 042
  3. ASPIRIN [Concomitant]
  4. ISOSORBIDE DINITRATE [Concomitant]

REACTIONS (7)
  - MYALGIA [None]
  - MUSCULAR WEAKNESS [None]
  - BACK PAIN [None]
  - PALPITATIONS [None]
  - INSOMNIA [None]
  - PARAESTHESIA [None]
  - HYPERTENSION [None]
